FAERS Safety Report 10131216 (Version 2)
Quarter: 2014Q2

REPORT INFORMATION
  Report Type: Other
  Country: IE (occurrence: IE)
  Receive Date: 20140428
  Receipt Date: 20140516
  Transmission Date: 20141212
  Serious: Yes (Other)
  Sender: FDA-Public Use
  Company Number: IE-SHIRE-IE201401420

PATIENT
  Sex: Male

DRUGS (3)
  1. ELAPRASE [Suspect]
     Indication: MUCOPOLYSACCHARIDOSIS II
     Dosage: 18 MG (ALTERNATING WITH 12 MG), OTHER ( IV INFUSION GIVEN WEEKLY)
     Route: 041
     Dates: start: 20111028
  2. ELAPRASE [Suspect]
     Dosage: 12 MG (ALTERNATING WITH 18 MG), OTHER (IV INFUSION GIVEN WEEKLY)
     Route: 041
     Dates: start: 20111028
  3. SALBUTAMOL [Concomitant]
     Indication: PRODUCT USED FOR UNKNOWN INDICATION
     Dosage: UNK, UNKNOWN
     Route: 065

REACTIONS (2)
  - Deafness [Not Recovered/Not Resolved]
  - Asthma [Not Recovered/Not Resolved]
